FAERS Safety Report 22877831 (Version 4)
Quarter: 2023Q4

REPORT INFORMATION
  Report Type: Spontaneous
  Country: US (occurrence: US)
  Receive Date: 20230829
  Receipt Date: 20231030
  Transmission Date: 20240110
  Serious: Yes (Hospitalization, Other)
  Sender: FDA-Public Use
  Company Number: US-PFIZER INC-PV202300146394

PATIENT
  Age: 66 Year
  Sex: Female
  Weight: 77.551 kg

DRUGS (1)
  1. XELJANZ XR [Suspect]
     Active Substance: TOFACITINIB CITRATE
     Dosage: 11 MG
     Dates: start: 20230902, end: 20230914

REACTIONS (14)
  - Pain [Not Recovered/Not Resolved]
  - Gait disturbance [Unknown]
  - Cerebrovascular accident [Unknown]
  - Diabetes mellitus [Unknown]
  - Infection [Unknown]
  - Scratch [Unknown]
  - Pruritus [Unknown]
  - Migraine [Unknown]
  - Nausea [Unknown]
  - Abdominal discomfort [Unknown]
  - Insomnia [Unknown]
  - Headache [Unknown]
  - Illness [Unknown]
  - Vomiting [Unknown]
